FAERS Safety Report 6724803-3 (Version None)
Quarter: 2010Q2

REPORT INFORMATION
  Report Type: 
  Country: None (occurrence: None)
  Receive Date: 20100513
  Receipt Date: 20100503
  Transmission Date: 20101027
  Serious: Yes (Other)
  Sender: FDA-Public Use
  Company Number: US-JNJFOC-20091200997

PATIENT
  Sex: Female
  Weight: 83.92 kg

DRUGS (7)
  1. REMICADE [Suspect]
     Indication: RHEUMATOID ARTHRITIS
     Route: 042
  2. VOLTAREN [Suspect]
     Indication: RHEUMATOID ARTHRITIS
     Route: 048
  3. PREDNISONE [Concomitant]
  4. METHOTREXATE [Concomitant]
  5. FOSAMAX [Concomitant]
  6. OS-CAL D [Concomitant]
  7. CELEXA [Concomitant]
     Indication: DEPRESSION

REACTIONS (7)
  - DEHYDRATION [None]
  - ENCEPHALITIS VIRAL [None]
  - ENCEPHALOPATHY [None]
  - PNEUMONIA ASPIRATION [None]
  - PROCEDURAL VOMITING [None]
  - RENAL FAILURE ACUTE [None]
  - SPINAL COLUMN STENOSIS [None]
